FAERS Safety Report 5267773-X (Version None)
Quarter: 2007Q1

REPORT INFORMATION
  Report Type: 
  Country: None (occurrence: None)
  Receive Date: 20070316
  Receipt Date: 20070313
  Transmission Date: 20070707
  Serious: Yes (Other)
  Sender: FDA-Public Use
  Company Number: US-ABBOTT-07P-163-0361963-00

PATIENT
  Age: 28 Year
  Sex: Female

DRUGS (11)
  1. VALPROIC ACID [Suspect]
     Indication: CONVULSION
  2. TIAGABINE HCL [Interacting]
     Indication: CONVULSION
  3. TIAGABINE HCL [Interacting]
  4. TIAGABINE HCL [Interacting]
  5. TIAGABINE HCL [Interacting]
  6. TIAGABINE HCL [Interacting]
  7. TIAGABINE HCL [Interacting]
  8. TIAGABINE HCL [Interacting]
  9. TIAGABINE HCL [Interacting]
  10. CARBAMAZEPINE [Concomitant]
     Indication: CONVULSION
     Dosage: NOT REPORTED
  11. CARBAMAZEPINE [Concomitant]
     Dosage: NOT REPORTED

REACTIONS (2)
  - DRUG INTERACTION [None]
  - STATUS EPILEPTICUS [None]
